FAERS Safety Report 11743836 (Version 1)
Quarter: 2015Q4

REPORT INFORMATION
  Report Type: Spontaneous
  Country: US (occurrence: US)
  Receive Date: 20151116
  Receipt Date: 20151116
  Transmission Date: 20160304
  Serious: No
  Sender: FDA-Public Use
  Company Number: US-BAYER-2015-463689

PATIENT
  Age: 89 Year
  Sex: Female
  Weight: 55.78 kg

DRUGS (2)
  1. MIRALAX [Suspect]
     Active Substance: POLYETHYLENE GLYCOL 3350
     Indication: CONSTIPATION
     Dosage: UNK
     Route: 048
  2. XANAX [Concomitant]
     Active Substance: ALPRAZOLAM

REACTIONS (5)
  - Product use issue [None]
  - Product use issue [None]
  - Product use issue [None]
  - Intercepted drug prescribing error [None]
  - Product use issue [None]

NARRATIVE: CASE EVENT DATE: 20151030
